FAERS Safety Report 8943627 (Version 2)
Quarter: 2012Q4

REPORT INFORMATION
  Report Type: Report from Study
  Country: CA (occurrence: CA)
  Receive Date: 20121204
  Receipt Date: 20121210
  Transmission Date: 20130627
  Serious: Yes (Death, Hospitalization, Other)
  Sender: FDA-Public Use
  Company Number: PHHY2012CA110725

PATIENT
  Age: 67 Year
  Sex: Male

DRUGS (17)
  1. CLOZARIL [Suspect]
     Indication: SCHIZOPHRENIA
     Route: 048
     Dates: start: 20120329
  2. CLOZARIL [Suspect]
     Dosage: 300 mg, UNK
  3. ASAPHEN [Concomitant]
  4. MIRTAZAPINE [Concomitant]
  5. CLONAZEPAM [Concomitant]
  6. TEMAZEPAM [Concomitant]
  7. FLOMAX [Concomitant]
  8. CENTRUM [Concomitant]
  9. SENNA LAX [Concomitant]
  10. DOCUSATE [Concomitant]
  11. DOMPERIDONE [Concomitant]
  12. ACETAMINOPHEN [Concomitant]
  13. SINEMET [Concomitant]
  14. APO-LEVOCARB [Concomitant]
  15. NEXIUM [Concomitant]
  16. LYRICA [Concomitant]
  17. LEVOCARB [Concomitant]
     Dosage: UNK UKN, PRN

REACTIONS (7)
  - Death [Fatal]
  - Cholangitis [Unknown]
  - Abdominal pain [Unknown]
  - Septic shock [Unknown]
  - Sepsis [Unknown]
  - Renal failure [Unknown]
  - Hypoperfusion [Unknown]
